FAERS Safety Report 20548900 (Version 3)
Quarter: 2022Q1

REPORT INFORMATION
  Report Type: Other
  Country: JP (occurrence: JP)
  Receive Date: 20220303
  Receipt Date: 20220311
  Transmission Date: 20220423
  Serious: Yes (Death, Hospitalization)
  Sender: FDA-Public Use
  Company Number: JP-CHUGAI-2022006248

PATIENT
  Age: 63 Year
  Sex: Female

DRUGS (2)
  1. CELLCEPT [Suspect]
     Active Substance: MYCOPHENOLATE MOFETIL
     Indication: Prophylaxis against transplant rejection
     Route: 048
  2. TACROLIMUS [Concomitant]
     Active Substance: TACROLIMUS
     Indication: Prophylaxis against transplant rejection
     Route: 048

REACTIONS (2)
  - Death [Fatal]
  - Gastrointestinal necrosis [Unknown]
